FAERS Safety Report 12606176 (Version 2)
Quarter: 2016Q3

REPORT INFORMATION
  Report Type: Spontaneous
  Country: US (occurrence: US)
  Receive Date: 20160729
  Receipt Date: 20160817
  Transmission Date: 20161109
  Serious: No
  Sender: FDA-Public Use
  Company Number: US-PFIZER INC-2016363375

PATIENT
  Age: 83 Year
  Sex: Female
  Weight: 83.46 kg

DRUGS (1)
  1. LYRICA [Suspect]
     Active Substance: PREGABALIN
     Indication: FIBROMYALGIA
     Dosage: 75 MG, DAILY (75 MG, CAPSULE , MOUTH, 1 CAPSULE A DAY)
     Route: 048

REACTIONS (4)
  - Bone pain [Unknown]
  - Myalgia [Unknown]
  - Drug dose omission [Unknown]
  - Pain [Unknown]
